FAERS Safety Report 22159510 (Version 2)
Quarter: 2023Q2

REPORT INFORMATION
  Report Type: Report from Study
  Country: US (occurrence: US)
  Receive Date: 20230331
  Receipt Date: 20230503
  Transmission Date: 20230722
  Serious: Yes (Other)
  Sender: FDA-Public Use
  Company Number: US-ABBVIE-4710763

PATIENT
  Age: 78 Year
  Sex: Male

DRUGS (3)
  1. IMBRUVICA [Suspect]
     Active Substance: IBRUTINIB
     Indication: Chronic lymphocytic leukaemia
     Route: 048
     Dates: start: 20160401, end: 202303
  2. IMBRUVICA [Suspect]
     Active Substance: IBRUTINIB
     Indication: Chronic lymphocytic leukaemia
     Route: 048
  3. UMBRALISIB [Concomitant]
     Active Substance: UMBRALISIB
     Indication: Product used for unknown indication
     Dates: end: 20230316

REACTIONS (5)
  - Dental care [Unknown]
  - Haemoglobin decreased [Unknown]
  - Sinusitis [Unknown]
  - Blood iron decreased [Unknown]
  - Central venous catheterisation [Unknown]

NARRATIVE: CASE EVENT DATE: 20230315
